FAERS Safety Report 12697006 (Version 1)
Quarter: 2016Q3

REPORT INFORMATION
  Report Type: Spontaneous
  Country: US (occurrence: None)
  Receive Date: 20160829
  Receipt Date: 20160829
  Transmission Date: 20161109
  Serious: No
  Sender: FDA-Public Use
  Company Number: None

PATIENT
  Age: 42 Year
  Sex: Female
  Weight: 44.45 kg

DRUGS (2)
  1. PHENAZOPYRIDINE HYDROCHLORIDE, 97.5 MG [Suspect]
     Active Substance: PHENAZOPYRIDINE HYDROCHLORIDE
     Indication: BLADDER PAIN
     Route: 048
  2. VITAMIN B COMPLEX [Concomitant]
     Active Substance: CYANOCOBALAMIN\DEXPANTHENOL\NIACINAMIDE\PYRIDOXINE HYDROCHLORIDE\RIBOFLAVIN 5^-PHOSPHATE SODIUM\THIAMINE HYDROCHLORIDE\VITAMIN B COMPLEX

REACTIONS (2)
  - Thirst [None]
  - Flank pain [None]

NARRATIVE: CASE EVENT DATE: 20160827
